FAERS Safety Report 17457983 (Version 1)
Quarter: 2020Q1

REPORT INFORMATION
  Report Type: Spontaneous
  Country: US (occurrence: US)
  Receive Date: 20200225
  Receipt Date: 20200225
  Transmission Date: 20200409
  Serious: No
  Sender: FDA-Public Use
  Company Number: US-ROCHE-2513023

PATIENT
  Sex: Male

DRUGS (2)
  1. ELDERBERRY [SAMBUCUS NIGRA] [Concomitant]
  2. XOFLUZA [Suspect]
     Active Substance: BALOXAVIR MARBOXIL
     Indication: INFLUENZA
     Dosage: ONGOING : NO
     Route: 048
     Dates: start: 20190923, end: 20190923

REACTIONS (2)
  - Hyperhidrosis [Recovered/Resolved]
  - Abnormal dreams [Recovered/Resolved]

NARRATIVE: CASE EVENT DATE: 20190924
